FAERS Safety Report 12918879 (Version 2)
Quarter: 2016Q4

REPORT INFORMATION
  Report Type: Report from Study
  Country: JP (occurrence: JP)
  Receive Date: 20161108
  Receipt Date: 20161111
  Transmission Date: 20170207
  Serious: Yes (Hospitalization)
  Sender: FDA-Public Use
  Company Number: PHJP2014JP009501

PATIENT
  Age: 56 Year
  Sex: Male
  Weight: 64 kg

DRUGS (22)
  1. SIMULECT [Suspect]
     Active Substance: BASILIXIMAB
     Dosage: 20 MG, QD
     Route: 048
     Dates: start: 20140525, end: 20140525
  2. MICAMLO [Concomitant]
     Active Substance: AMLODIPINE BESYLATE\TELMISARTAN
     Indication: PRODUCT USED FOR UNKNOWN INDICATION
     Dosage: 1 DF, QD
     Route: 048
     Dates: start: 20140612
  3. NEXIUM [Concomitant]
     Active Substance: ESOMEPRAZOLE MAGNESIUM
     Indication: PRODUCT USED FOR UNKNOWN INDICATION
     Dosage: 20 MG, QD
     Route: 048
     Dates: start: 20140521
  4. MEDROL [Suspect]
     Active Substance: METHYLPREDNISOLONE
     Dosage: 32 MG, QD
     Route: 048
     Dates: start: 20140525, end: 20140527
  5. MEDROL [Suspect]
     Active Substance: METHYLPREDNISOLONE
     Dosage: 8 MG, QD
     Route: 048
     Dates: start: 20140603, end: 20140609
  6. NO TREATMENT RECEIVED [Suspect]
     Active Substance: UNSPECIFIED INGREDIENT
     Indication: RENAL TRANSPLANT
     Dosage: NO TREATMENT
     Route: 065
  7. CELLCEPT [Suspect]
     Active Substance: MYCOPHENOLATE MOFETIL\MYCOPHENOLATE MOFETIL HYDROCHLORIDE
     Indication: RENAL TRANSPLANT
     Dosage: 1000 MG, BID
     Route: 048
     Dates: start: 20140522
  8. PROGRAF [Suspect]
     Active Substance: TACROLIMUS\TACROLIMUS ANHYDROUS
     Indication: RENAL TRANSPLANT
     Dosage: 5 MG, BID
     Route: 048
     Dates: start: 20140518
  9. PROGRAF [Suspect]
     Active Substance: TACROLIMUS\TACROLIMUS ANHYDROUS
     Dosage: 7 MG, BID
     Route: 048
     Dates: start: 20140528
  10. MEDROL [Suspect]
     Active Substance: METHYLPREDNISOLONE
     Dosage: 24 MG, QD
     Route: 048
     Dates: start: 20140528, end: 20140530
  11. MEDROL [Suspect]
     Active Substance: METHYLPREDNISOLONE
     Dosage: 4 MG, QD
     Route: 048
     Dates: start: 20140610
  12. CELLCEPT [Suspect]
     Active Substance: MYCOPHENOLATE MOFETIL\MYCOPHENOLATE MOFETIL HYDROCHLORIDE
     Dosage: 500 MG, BID
     Route: 048
     Dates: start: 20141024
  13. MEDROL [Suspect]
     Active Substance: METHYLPREDNISOLONE
     Indication: RENAL TRANSPLANT
     Dosage: 40 MG, QD
     Route: 048
     Dates: start: 20140523, end: 20140524
  14. MEDROL [Suspect]
     Active Substance: METHYLPREDNISOLONE
     Dosage: 16 MG, QD
     Route: 048
     Dates: start: 20140531, end: 20140602
  15. LOCHOL [Concomitant]
     Active Substance: FLUVASTATIN SODIUM
     Indication: PRODUCT USED FOR UNKNOWN INDICATION
     Dosage: 1 DF, QD
     Route: 048
     Dates: start: 20140611
  16. SIMULECT [Suspect]
     Active Substance: BASILIXIMAB
     Indication: RENAL TRANSPLANT
     Dosage: 20 MG, QD
     Route: 048
     Dates: start: 20140521, end: 20140521
  17. BAYASPIRIN [Concomitant]
     Active Substance: ASPIRIN
     Indication: RENAL TRANSPLANT
     Dosage: 100 MG, QD
     Route: 048
     Dates: start: 20140522
  18. PROGRAF [Suspect]
     Active Substance: TACROLIMUS\TACROLIMUS ANHYDROUS
     Dosage: 6 MG, BID
     Route: 048
     Dates: start: 20140710
  19. CELLCEPT [Suspect]
     Active Substance: MYCOPHENOLATE MOFETIL\MYCOPHENOLATE MOFETIL HYDROCHLORIDE
     Dosage: 750 MG, BID
     Route: 048
     Dates: start: 20140612
  20. PROGRAF [Suspect]
     Active Substance: TACROLIMUS\TACROLIMUS ANHYDROUS
     Dosage: 6 MG, BID
     Route: 048
     Dates: start: 20140523
  21. PROGRAF [Suspect]
     Active Substance: TACROLIMUS\TACROLIMUS ANHYDROUS
     Dosage: 5 MG, BID
     Route: 048
     Dates: start: 20141023
  22. BAKTAR [Concomitant]
     Active Substance: SULFAMETHOXAZOLE\TRIMETHOPRIM
     Indication: INFECTION PROPHYLAXIS
     Dosage: 1 DF, QD
     Route: 048
     Dates: start: 20140526

REACTIONS (1)
  - Cellulitis [Recovered/Resolved]

NARRATIVE: CASE EVENT DATE: 20141009
